FAERS Safety Report 6905530-6 (Version None)
Quarter: 2010Q3

REPORT INFORMATION
  Report Type: 
  Country: None (occurrence: None)
  Receive Date: 20100804
  Receipt Date: 20100723
  Transmission Date: 20110219
  Serious: Yes (Hospitalization, Other)
  Sender: FDA-Public Use
  Company Number: US-PFIZER INC-2010018826

PATIENT
  Sex: Female

DRUGS (15)
  1. CHANTIX [Suspect]
     Indication: SMOKING CESSATION THERAPY
     Dosage: 0.5MG/ 1MG
     Route: 048
     Dates: start: 20080204, end: 20080223
  2. CIPROFLOXACIN [Concomitant]
     Indication: SINUSITIS
     Dosage: UNK
     Dates: start: 20000101, end: 20090101
  3. CIPROFLOXACIN [Concomitant]
     Indication: RHINITIS
  4. CIPROFLOXACIN [Concomitant]
     Indication: FUNGAL INFECTION
  5. FLUCONAZOLE [Concomitant]
     Indication: SINUSITIS
     Dosage: UNK
     Dates: start: 20000101, end: 20090101
  6. FLUCONAZOLE [Concomitant]
     Indication: RHINITIS
  7. FLUCONAZOLE [Concomitant]
     Indication: FUNGAL INFECTION
  8. NAPROXEN [Concomitant]
     Indication: BACK PAIN
     Dosage: UNK
     Dates: start: 20050101, end: 20090101
  9. HYDROCODONE [Concomitant]
     Indication: JOINT INJURY
     Dosage: UNK
     Dates: start: 20050101, end: 20080101
  10. HYDROCODONE [Concomitant]
     Indication: BACK PAIN
  11. HYDROCODONE [Concomitant]
     Indication: INJURY
  12. PROPOXYPHENE HCL [Concomitant]
     Indication: JOINT INJURY
     Dosage: UNK
     Dates: start: 20050101, end: 20080101
  13. PROPOXYPHENE HCL [Concomitant]
     Indication: BACK PAIN
  14. PROPOXYPHENE HCL [Concomitant]
     Indication: INJURY
  15. ATIVAN [Concomitant]
     Indication: ANXIETY
     Dosage: UNK
     Dates: start: 20040101, end: 20080201

REACTIONS (16)
  - ABNORMAL BEHAVIOUR [None]
  - AGEUSIA [None]
  - AGGRESSION [None]
  - AGITATION [None]
  - AMNESIA [None]
  - ANOSMIA [None]
  - ANXIETY [None]
  - BRAIN CONTUSION [None]
  - CONTUSION [None]
  - DEPRESSION [None]
  - IRRITABILITY [None]
  - PAIN [None]
  - SCAR [None]
  - SKULL FRACTURE [None]
  - SUBDURAL HAEMATOMA [None]
  - SUICIDE ATTEMPT [None]
